FAERS Safety Report 5669265-2 (Version None)
Quarter: 2008Q1

REPORT INFORMATION
  Report Type: 
  Country: None (occurrence: None)
  Receive Date: 20080317
  Receipt Date: 20080304
  Transmission Date: 20080703
  Serious: No
  Sender: FDA-Public Use
  Company Number: ES-ELI_LILLY_AND_COMPANY-ES200803000750

PATIENT
  Age: 78 Year
  Sex: Female

DRUGS (1)
  1. ZYPREXA [Suspect]
     Indication: ABNORMAL BEHAVIOUR
     Dosage: 5 MG, DAILY (1/D)
     Route: 048
     Dates: start: 20060101, end: 20080229

REACTIONS (1)
  - LEUKOPENIA [None]
